FAERS Safety Report 9316449 (Version 2)
Quarter: 2013Q3

REPORT INFORMATION
  Report Type: Spontaneous
  Country: FR (occurrence: FR)
  Receive Date: 20130530
  Receipt Date: 20130819
  Transmission Date: 20140515
  Serious: Yes (Hospitalization, Other)
  Sender: FDA-Public Use
  Company Number: FR-GENZYME-RENA-1001799

PATIENT
  Age: 50 Year
  Sex: Male

DRUGS (16)
  1. RENAGEL [Suspect]
     Indication: PRODUCT USED FOR UNKNOWN INDICATION
     Dosage: 1600 MG, QD
     Route: 048
     Dates: start: 20120817, end: 20130204
  2. MOPRAL [Suspect]
     Indication: PRODUCT USED FOR UNKNOWN INDICATION
     Dosage: 20 MG, QD
     Route: 048
     Dates: start: 20120816, end: 20120902
  3. INEXIUM [Suspect]
     Indication: PRODUCT USED FOR UNKNOWN INDICATION
     Dosage: 40 MG, QD
     Route: 048
     Dates: start: 20120903, end: 20130122
  4. INEXIUM [Suspect]
     Dosage: 20 MG, QD
     Route: 048
     Dates: start: 20130123, end: 20130205
  5. INEXIUM [Suspect]
     Dosage: 20 MG, QD
     Route: 048
     Dates: start: 20130216, end: 20130221
  6. AMLOR [Suspect]
     Indication: PRODUCT USED FOR UNKNOWN INDICATION
     Dosage: 10 MG, QD
     Route: 048
     Dates: end: 20130204
  7. LASILIX [Suspect]
     Indication: PRODUCT USED FOR UNKNOWN INDICATION
     Dosage: 40 MG, QD
     Route: 048
     Dates: end: 20120904
  8. LASILIX [Suspect]
     Dosage: 1000 MG, QD
     Route: 048
     Dates: start: 20120904, end: 20130205
  9. SOLUPRED [Suspect]
     Indication: PRODUCT USED FOR UNKNOWN INDICATION
     Dosage: 5 MG, QD
     Route: 048
     Dates: start: 20120818, end: 20130205
  10. CALCIDIA [Suspect]
     Indication: PRODUCT USED FOR UNKNOWN INDICATION
     Dosage: 2 DF, QD
     Route: 048
     Dates: start: 20120817, end: 20120908
  11. OROCAL [Suspect]
     Indication: PRODUCT USED FOR UNKNOWN INDICATION
     Dosage: 1500 MG, QD
     Route: 048
     Dates: start: 20120909, end: 20130214
  12. TACROLIMUS [Concomitant]
     Indication: PRODUCT USED FOR UNKNOWN INDICATION
     Dosage: UNK
     Route: 065
  13. DETENSIEL [Concomitant]
     Indication: PRODUCT USED FOR UNKNOWN INDICATION
     Dosage: UNK
     Route: 065
  14. BISOPROLOL [Concomitant]
     Indication: PRODUCT USED FOR UNKNOWN INDICATION
     Dosage: UNK
     Route: 065
  15. ASPEGIC [Concomitant]
     Indication: PRODUCT USED FOR UNKNOWN INDICATION
     Dosage: UNK
     Route: 065
  16. KARDEGIC [Concomitant]
     Indication: PRODUCT USED FOR UNKNOWN INDICATION
     Dosage: UNK
     Route: 065

REACTIONS (9)
  - Kidney transplant rejection [Unknown]
  - Cholestasis [Not Recovered/Not Resolved]
  - Jaundice [Recovered/Resolved]
  - Enterococcal sepsis [Unknown]
  - Splenomegaly [Unknown]
  - Hepatic fibrosis [Unknown]
  - Epstein-Barr virus infection [Unknown]
  - Cardio-respiratory arrest [Unknown]
  - Ascites [Unknown]
